FAERS Safety Report 6609122-8 (Version None)
Quarter: 2010Q1

REPORT INFORMATION
  Report Type: 
  Country: None (occurrence: None)
  Receive Date: 20100301
  Receipt Date: 20100225
  Transmission Date: 20100710
  Serious: Yes (Life-Threatening, Hospitalization, Other)
  Sender: FDA-Public Use
  Company Number: DE-MERCK-1002DEU00126

PATIENT
  Age: 42 Year
  Sex: Male
  Weight: 50 kg

DRUGS (3)
  1. ISENTRESS [Suspect]
     Indication: HIV INFECTION
     Route: 048
     Dates: start: 20100107, end: 20100108
  2. LOPINAVIR AND RITONAVIR [Suspect]
     Indication: HIV INFECTION
     Route: 048
     Dates: start: 20100107, end: 20100108
  3. DOXYCYCLINE [Suspect]
     Route: 048
     Dates: start: 20091227, end: 20100107

REACTIONS (1)
  - PANCREATITIS ACUTE [None]
